FAERS Safety Report 9799259 (Version 3)
Quarter: 2015Q3

REPORT INFORMATION
  Report Type: Spontaneous
  Country: US (occurrence: US)
  Receive Date: 20140106
  Receipt Date: 20150807
  Transmission Date: 20151125
  Serious: Yes (Hospitalization)
  Sender: FDA-Public Use
  Company Number: US-GILEAD-2010-0034072

PATIENT
  Age: 75 Year
  Sex: Male
  Weight: 75.3 kg

DRUGS (8)
  1. COREG [Concomitant]
     Active Substance: CARVEDILOL
  2. LETAIRIS [Suspect]
     Active Substance: AMBRISENTAN
     Indication: PULMONARY HYPERTENSION
     Route: 048
     Dates: start: 20101102, end: 20101215
  3. NIASPAN [Concomitant]
     Active Substance: NIACIN
  4. CILOSTAZOL. [Concomitant]
     Active Substance: CILOSTAZOL
  5. SIMVASTATIN. [Concomitant]
     Active Substance: SIMVASTATIN
  6. FUROSEMIDE. [Concomitant]
     Active Substance: FUROSEMIDE
  7. ASPIRIN. [Concomitant]
     Active Substance: ASPIRIN
  8. ALLOPURINOL. [Concomitant]
     Active Substance: ALLOPURINOL

REACTIONS (3)
  - Cardiac failure congestive [Recovered/Resolved]
  - Weight increased [Recovered/Resolved]
  - Dyspnoea [Recovered/Resolved]

NARRATIVE: CASE EVENT DATE: 201011
